FAERS Safety Report 12191078 (Version 1)
Quarter: 2016Q1

REPORT INFORMATION
  Report Type: Spontaneous
  Country: US (occurrence: US)
  Receive Date: 20160318
  Receipt Date: 20160318
  Transmission Date: 20160526
  Serious: No
  Sender: FDA-Public Use
  Company Number: US-PFIZER INC-2016162691

PATIENT
  Sex: Male
  Weight: 77.11 kg

DRUGS (1)
  1. ANTIVENIN (MICRURUS FULVIUS) [Suspect]
     Active Substance: CORAL SNAKE (MICRURUS FULVIUS) IMMUNE GLOBULIN ANTIVENIN (EQUINE)\NORTH AMERICAN CORAL SNAKE ANTIVENIN (MICRURUS FULVIUS) (EQUINE)
     Indication: SNAKE BITE
     Dosage: UNK
     Dates: start: 2015, end: 2015

REACTIONS (4)
  - Mental disorder [Unknown]
  - Oppositional defiant disorder [Unknown]
  - Personal relationship issue [Unknown]
  - Aggression [Unknown]
